FAERS Safety Report 22525286 (Version 1)
Quarter: 2023Q2

REPORT INFORMATION
  Report Type: Other
  Country: JP (occurrence: JP)
  Receive Date: 20230606
  Receipt Date: 20230606
  Transmission Date: 20230721
  Serious: Yes (Hospitalization)
  Sender: FDA-Public Use
  Company Number: JP-CHUGAI-2023019445

PATIENT
  Age: 67 Year
  Sex: Male

DRUGS (2)
  1. TECENTRIQ [Suspect]
     Active Substance: ATEZOLIZUMAB
     Indication: Hepatocellular carcinoma
     Dosage: UNK
     Route: 041
     Dates: start: 202106
  2. AVASTIN [Suspect]
     Active Substance: BEVACIZUMAB
     Indication: Hepatocellular carcinoma
     Dosage: UNK
     Route: 041
     Dates: start: 202106

REACTIONS (1)
  - Secondary adrenocortical insufficiency [Unknown]

NARRATIVE: CASE EVENT DATE: 20211101
